FAERS Safety Report 9340936 (Version 2)
Quarter: 2013Q3

REPORT INFORMATION
  Report Type: Report from Study
  Country: FR (occurrence: FR)
  Receive Date: 20130610
  Receipt Date: 20130701
  Transmission Date: 20140515
  Serious: Yes (Hospitalization)
  Sender: FDA-Public Use
  Company Number: FR-TEVA-401707USA

PATIENT
  Age: 81 Year
  Sex: Male
  Weight: 79 kg

DRUGS (3)
  1. BENDAMUSTINE [Suspect]
     Indication: NON-HODGKIN^S LYMPHOMA UNSPECIFIED HISTOLOGY INDOLENT
     Dosage: 8.2143 MILLIGRAM DAILY;
     Route: 042
     Dates: start: 20130206
  2. BENDAMUSTINE [Suspect]
     Dosage: 8.2143 MILLIGRAM DAILY;
     Route: 042
     Dates: start: 20130307
  3. INNOHEP [Concomitant]
     Indication: ARRHYTHMIA
     Dates: start: 20120814

REACTIONS (2)
  - Clostridial infection [Recovered/Resolved]
  - Sepsis [Recovered/Resolved]
